FAERS Safety Report 8457451-8 (Version None)
Quarter: 2012Q2

REPORT INFORMATION
  Report Type: 
  Country: None (occurrence: None)
  Receive Date: 20120621
  Receipt Date: 20120614
  Transmission Date: 20120825
  Serious: Yes (Hospitalization)
  Sender: FDA-Public Use
  Company Number: US-MERCK-1206USA02876

PATIENT
  Age: 81 Year
  Sex: Female

DRUGS (3)
  1. INVANZ [Suspect]
     Indication: NEOPLASM
     Route: 041
  2. ACETAMINOPHEN [Concomitant]
     Indication: PAIN
     Route: 065
  3. INVANZ [Suspect]
     Indication: SINUSITIS
     Route: 041

REACTIONS (3)
  - HALLUCINATION, VISUAL [None]
  - FALL [None]
  - HALLUCINATION, AUDITORY [None]
